FAERS Safety Report 25045750 (Version 1)
Quarter: 2025Q1

REPORT INFORMATION
  Report Type: Spontaneous
  Country: FR (occurrence: FR)
  Receive Date: 20250306
  Receipt Date: 20250306
  Transmission Date: 20250409
  Serious: Yes (Hospitalization, Other)
  Sender: EXELIXIS
  Company Number: FR-IPSEN Group, Research and Development-2025-04361

PATIENT
  Age: 47 Year
  Sex: Male
  Weight: 67 kg

DRUGS (2)
  1. CABOMETYX [Suspect]
     Active Substance: CABOZANTINIB S-MALATE
     Indication: Carcinoid tumour pulmonary
     Dosage: 20 MG/DAY
     Route: 048
     Dates: start: 20240726, end: 20240729
  2. CABOMETYX [Suspect]
     Active Substance: CABOZANTINIB S-MALATE
     Indication: Off label use

REACTIONS (3)
  - Pancytopenia [Recovering/Resolving]
  - Melaena [Recovered/Resolved]
  - Off label use [Unknown]

NARRATIVE: CASE EVENT DATE: 20240726
